FAERS Safety Report 7955185-7 (Version None)
Quarter: 2011Q4

REPORT INFORMATION
  Report Type: 
  Country: None (occurrence: None)
  Receive Date: 20111202
  Receipt Date: 20111123
  Transmission Date: 20120403
  Serious: Yes (Hospitalization)
  Sender: FDA-Public Use
  Company Number: PHHY2011CN102025

PATIENT
  Age: 40 Year
  Sex: Female

DRUGS (2)
  1. PARLODEL [Suspect]
     Indication: PITUITARY TUMOUR BENIGN
     Dosage: 0.5 DF, BID
     Route: 048
     Dates: start: 20111103
  2. PARLODEL [Suspect]
     Dosage: 1 DF, BID
     Route: 048

REACTIONS (7)
  - DIZZINESS [None]
  - SOMNOLENCE [None]
  - EYELID OEDEMA [None]
  - LYMPHADENOPATHY [None]
  - GASTROINTESTINAL DISORDER [None]
  - DECREASED APPETITE [None]
  - VISION BLURRED [None]
